FAERS Safety Report 17669190 (Version 1)
Quarter: 2020Q2

REPORT INFORMATION
  Report Type: Spontaneous
  Country: US (occurrence: US)
  Receive Date: 20200415
  Receipt Date: 20200415
  Transmission Date: 20200713
  Serious: No
  Sender: FDA-Public Use
  Company Number: US-GLAXOSMITHKLINE-US2020064324

PATIENT
  Age: 74 Year
  Sex: Female

DRUGS (2)
  1. ABREVA [Suspect]
     Active Substance: DOCOSANOL
     Indication: ORAL HERPES
     Dosage: USED IT 4 TIMES YESTERDAY. I USED IT TWO TIMES TODAY
     Dates: start: 20200408, end: 20200409
  2. ABREVA [Suspect]
     Active Substance: DOCOSANOL
     Dosage: USED IT 4 TIMES YESTERDAY. I USED IT TWO TIMES TODAY
     Dates: start: 20200408, end: 20200409

REACTIONS (4)
  - Incorrect product administration duration [Unknown]
  - Incorrect dose administered [Unknown]
  - Inappropriate schedule of product administration [Unknown]
  - Product complaint [Unknown]

NARRATIVE: CASE EVENT DATE: 20200408
